FAERS Safety Report 5719819-X (Version None)
Quarter: 2008Q2

REPORT INFORMATION
  Report Type: 
  Country: None (occurrence: None)
  Receive Date: 20080428
  Receipt Date: 20080423
  Transmission Date: 20081010
  Serious: Yes (Hospitalization)
  Sender: FDA-Public Use
  Company Number: US-MERCK-0804USA02230

PATIENT
  Age: 77 Year
  Sex: Female

DRUGS (5)
  1. SINGULAIR [Suspect]
     Indication: ASTHMA
     Route: 048
     Dates: start: 19930101
  2. COZAAR [Concomitant]
     Route: 065
  3. DIGITEK [Concomitant]
     Route: 065
  4. AMBIEN [Concomitant]
     Route: 065
  5. [THERAPY UNSPECIFIED] [Concomitant]
     Route: 065

REACTIONS (5)
  - BRONCHITIS [None]
  - HEADACHE [None]
  - LUNG INFECTION [None]
  - PNEUMONIA [None]
  - SLEEP DISORDER [None]
